FAERS Safety Report 9237588 (Version 3)
Quarter: 2014Q4

REPORT INFORMATION
  Report Type: Report from Study
  Country: NZ (occurrence: NZ)
  Receive Date: 20130418
  Receipt Date: 20141028
  Transmission Date: 20150529
  Serious: Yes (Other)
  Sender: FDA-Public Use
  Company Number: NZ-009507513-1304NZL007808

PATIENT
  Age: 73 Year
  Sex: Male
  Weight: 98 kg

DRUGS (9)
  1. EZETIMIBE AND SIMVASTATIN [Suspect]
     Active Substance: EZETIMIBE\SIMVASTATIN
     Indication: ACUTE CORONARY SYNDROME
     Dosage: UNK
     Route: 048
     Dates: start: 20090813
  2. ATORVASTATIN [Concomitant]
     Active Substance: ATORVASTATIN
     Dosage: 40 MG DAILY
     Route: 048
     Dates: start: 20110201
  3. METOPROLOL [Concomitant]
     Active Substance: METOPROLOL
     Dosage: 95 MG DAILY
     Route: 048
     Dates: start: 20090201
  4. METFORMIN [Concomitant]
     Active Substance: METFORMIN HYDROCHLORIDE
     Dosage: 500 MG DAILY
     Route: 048
     Dates: start: 20110228
  5. K-DUR [Suspect]
     Active Substance: POTASSIUM CHLORIDE
     Dosage: 600 MG DAILY
     Route: 048
     Dates: start: 20090201
  6. FUROSEMIDE. [Concomitant]
     Active Substance: FUROSEMIDE
     Dosage: 40 MG DAILY
     Route: 048
     Dates: start: 20090202
  7. ASPIRIN. [Concomitant]
     Active Substance: ASPIRIN
     Dosage: 100 MG DAILY
     Route: 048
     Dates: start: 20100801
  8. OMPERAZOL DURA [Concomitant]
     Dosage: 40 MG DAILY
     Route: 048
     Dates: start: 20090101
  9. CANDESARTAN [Concomitant]
     Active Substance: CANDESARTAN
     Dosage: 4 MG DAILY
     Route: 048
     Dates: start: 20090201, end: 20130228

REACTIONS (1)
  - Basal cell carcinoma [Recovered/Resolved]

NARRATIVE: CASE EVENT DATE: 20111011
